FAERS Safety Report 8401994-X (Version None)
Quarter: 2012Q2

REPORT INFORMATION
  Report Type: 
  Country: None (occurrence: None)
  Receive Date: 20120601
  Receipt Date: 20120529
  Transmission Date: 20120825
  Serious: Yes (Other)
  Sender: FDA-Public Use
  Company Number: US-PFIZER INC-2012129121

PATIENT
  Sex: Male

DRUGS (1)
  1. CHANTIX [Suspect]
     Dosage: UNK
     Dates: start: 20090801

REACTIONS (6)
  - PARANOIA [None]
  - HALLUCINATION [None]
  - AGGRESSION [None]
  - DEPRESSION [None]
  - ANGER [None]
  - ANXIETY [None]
